FAERS Safety Report 8380804-3 (Version None)
Quarter: 2012Q2

REPORT INFORMATION
  Report Type: 
  Country: None (occurrence: None)
  Receive Date: 20120523
  Receipt Date: 20120508
  Transmission Date: 20120825
  Serious: Yes (Other)
  Sender: FDA-Public Use
  Company Number: NZ-JNJFOC-20120508397

PATIENT
  Age: 53 Year
  Sex: Female

DRUGS (8)
  1. RISPERIDONE [Suspect]
     Route: 048
     Dates: start: 20110118
  2. MULTI-VITAMINS [Concomitant]
     Route: 065
  3. ACCUPRIL [Concomitant]
     Route: 065
  4. RISPERIDONE [Suspect]
     Indication: SCHIZOAFFECTIVE DISORDER
     Route: 048
     Dates: end: 20110118
  5. FUROSEMIDE [Concomitant]
     Route: 065
  6. CITALOPRAM HYDROBROMIDE [Concomitant]
     Route: 065
  7. RISPERDAL CONSTA [Suspect]
     Indication: SCHIZOAFFECTIVE DISORDER
     Route: 030
     Dates: start: 20110118
  8. VALPROATE SODIUM [Concomitant]
     Route: 065

REACTIONS (2)
  - BREAST CANCER [None]
  - HYPERPROLACTINAEMIA [None]
